FAERS Safety Report 5748197-5 (Version None)
Quarter: 2008Q2

REPORT INFORMATION
  Report Type: 
  Country: None (occurrence: None)
  Receive Date: 20080523
  Receipt Date: 20080428
  Transmission Date: 20081010
  Serious: No
  Sender: FDA-Public Use
  Company Number: US-BOEHRINGER INGELHEIM GMBH, GERMANY-2008-BP-06614BP

PATIENT
  Age: 31 Year
  Sex: Female

DRUGS (2)
  1. ZANTAC [Suspect]
     Indication: DYSPEPSIA
     Route: 048
     Dates: start: 20080201
  2. VITAMIN TAB [Concomitant]

REACTIONS (1)
  - DRUG SCREEN POSITIVE [None]
